FAERS Safety Report 4609526-9 (Version None)
Quarter: 2005Q1

REPORT INFORMATION
  Report Type: 
  Country: None (occurrence: None)
  Receive Date: 20050316
  Receipt Date: 20050302
  Transmission Date: 20050727
  Serious: Yes (Hospitalization, Other)
  Sender: FDA-Public Use
  Company Number: DE-JNJFOC-20041103937

PATIENT
  Age: 57 Year
  Sex: Male
  Weight: 92 kg

DRUGS (13)
  1. REMICADE [Suspect]
     Indication: CROHN'S DISEASE
     Route: 042
  2. ENTOCORT [Concomitant]
     Route: 065
  3. BERODUAL [Concomitant]
     Route: 065
  4. BERODUAL [Concomitant]
     Route: 065
  5. PULMICORT [Concomitant]
     Route: 065
  6. BUDENOSIDE [Concomitant]
     Indication: CROHN'S DISEASE
     Route: 049
  7. MESALAMINE [Concomitant]
     Indication: CROHN'S DISEASE
     Route: 049
  8. OMEPRAZOLE [Concomitant]
     Indication: GASTRITIS
     Route: 049
  9. IPATROPIUM BROMIDE [Concomitant]
     Dosage: IPRATROPIUM BROMIDE/FENOTEROLE 2 PUFFS TID
     Route: 055
  10. FENOTEROLE [Concomitant]
     Dosage: IPRATROPIUM BROMIDE/FENOTEROLE 2 PUFFS TID
     Route: 055
  11. FORMOTEROL [Concomitant]
     Dosage: 2 PUFF/DAY
     Route: 055
  12. ACETYLCYSTEINE [Concomitant]
     Route: 049
  13. MORPHINE [Concomitant]
     Indication: PAIN
     Route: 049

REACTIONS (12)
  - CHRONIC OBSTRUCTIVE AIRWAYS DISEASE EXACERBATED [None]
  - DERMATITIS [None]
  - DYSPNOEA [None]
  - DYSPNOEA AT REST [None]
  - INFUSION RELATED REACTION [None]
  - LABORATORY TEST ABNORMAL [None]
  - LUNG INFILTRATION [None]
  - SKIN DISCOLOURATION [None]
  - SKIN REACTION [None]
  - TACHYCARDIA [None]
  - VASCULITIS [None]
  - WHITE BLOOD CELL COUNT INCREASED [None]
